FAERS Safety Report 24643785 (Version 3)
Quarter: 2024Q4

REPORT INFORMATION
  Report Type: Spontaneous
  Country: US (occurrence: US)
  Receive Date: 20241120
  Receipt Date: 20241223
  Transmission Date: 20250115
  Serious: No
  Sender: PFIZER
  Company Number: US-PFIZER INC-PV202400149810

PATIENT
  Age: 65 Year
  Sex: Female
  Weight: 78.7 kg

DRUGS (27)
  1. NIVESTYM [Suspect]
     Active Substance: FILGRASTIM-AAFI
     Indication: Plasma cell myeloma
     Dosage: INJECT ONE 300 MCG + ONE 480 MCG SYRING DAILY EACH MORNING X 5 DAYS
     Route: 058
     Dates: start: 20241121, end: 20241126
  2. OXYCODONE [Concomitant]
     Active Substance: OXYCODONE
     Dosage: 5 MG, AS NEEDED
     Route: 048
  3. ATIVAN [Concomitant]
     Active Substance: LORAZEPAM
     Indication: Sleep disorder
     Dosage: 1 DF, 1 TO 2 TIMES PER DAY AS NEEDED
     Route: 048
  4. ATIVAN [Concomitant]
     Active Substance: LORAZEPAM
     Indication: Nausea
  5. ATIVAN [Concomitant]
     Active Substance: LORAZEPAM
     Indication: Vomiting
  6. COMPAZINE [Concomitant]
     Active Substance: PROCHLORPERAZINE MALEATE
     Indication: Nausea
     Dosage: 1 DF, EVERY 6 OR 8 HOURS AS NEEDED
     Route: 048
  7. COMPAZINE [Concomitant]
     Active Substance: PROCHLORPERAZINE MALEATE
     Indication: Vomiting
  8. ATORVASTATIN [Concomitant]
     Active Substance: ATORVASTATIN
     Dosage: 10 MG, DAILY
     Route: 048
  9. CALCIUM CARBONATE [Concomitant]
     Active Substance: CALCIUM CARBONATE
     Dosage: 500 MG
     Route: 048
  10. CALCIUM [Concomitant]
     Active Substance: CALCIUM
     Dosage: 1250 MG, 2X/DAY
     Route: 048
  11. ELIQUIS [Concomitant]
     Active Substance: APIXABAN
     Dosage: 5 MG, 2X/DAY
     Route: 048
  12. FAMOTIDINE [Concomitant]
     Active Substance: FAMOTIDINE
     Dosage: 40 MG, 2X/DAY
     Route: 048
  13. GABAPENTIN [Concomitant]
     Active Substance: GABAPENTIN
     Dosage: 100 MG, 10 DAYS
     Route: 048
  14. MORPHINE [Concomitant]
     Active Substance: MORPHINE
     Dosage: 15 MG, AT NIGHT
     Route: 048
  15. OMEPRAZOLE [Concomitant]
     Active Substance: OMEPRAZOLE
     Dosage: 40 MG, DAILY
     Route: 048
  16. ONDANSETRON [Concomitant]
     Active Substance: ONDANSETRON
     Dosage: 4 MG, AS NEEDED
     Route: 048
  17. SENNOSIDES [Concomitant]
     Active Substance: SENNOSIDES
     Dosage: AS NEEDED
     Route: 048
  18. VALACYCLOVIR [Concomitant]
     Active Substance: VALACYCLOVIR HYDROCHLORIDE
     Dosage: 500 MG, DAILY
     Route: 048
  19. VITAMIN D3 [Concomitant]
     Active Substance: CHOLECALCIFEROL
     Dosage: UNK, DAILY
     Route: 048
  20. ZINC [Concomitant]
     Active Substance: ZINC
     Dosage: 14 MG, DAILY
     Route: 048
  21. DEXAMETHASONE [Concomitant]
     Active Substance: DEXAMETHASONE
  22. PREDNISONE [Concomitant]
     Active Substance: PREDNISONE
  23. XGEVA [Concomitant]
     Active Substance: DENOSUMAB
  24. ACYCLOVIR [Concomitant]
     Active Substance: ACYCLOVIR
  25. DARATUMUMAB [Concomitant]
     Active Substance: DARATUMUMAB
  26. LENALIDOMIDE [Concomitant]
     Active Substance: LENALIDOMIDE
  27. BORTEZOMIB [Concomitant]
     Active Substance: BORTEZOMIB

REACTIONS (8)
  - Blood urea increased [Unknown]
  - Blood creatinine increased [Unknown]
  - Complement factor C3 decreased [Unknown]
  - Complement factor C4 decreased [Unknown]
  - Disease recurrence [Recovering/Resolving]
  - Gait disturbance [Unknown]
  - Disease progression [Unknown]
  - Off label use [Unknown]

NARRATIVE: CASE EVENT DATE: 20240101
